FAERS Safety Report 6527154-5 (Version None)
Quarter: 2010Q1

REPORT INFORMATION
  Report Type: 
  Country: None (occurrence: None)
  Receive Date: 20100105
  Receipt Date: 20100104
  Transmission Date: 20100710
  Serious: Yes (Other)
  Sender: FDA-Public Use
  Company Number: A0836529A

PATIENT
  Sex: Female

DRUGS (4)
  1. WELLBUTRIN [Suspect]
     Indication: DRUG USE FOR UNKNOWN INDICATION
     Route: 048
  2. TOPAMAX [Suspect]
     Indication: DRUG USE FOR UNKNOWN INDICATION
     Route: 065
  3. MIGRAINE MEDICATION [Suspect]
     Indication: MIGRAINE
     Route: 065
  4. AMITRIPTYLINE [Concomitant]
     Indication: MIGRAINE
     Dosage: 150MG AT NIGHT

REACTIONS (9)
  - BIPOLAR DISORDER [None]
  - DIZZINESS [None]
  - DRUG EFFECT DECREASED [None]
  - MANIA [None]
  - NAUSEA [None]
  - SOCIAL PHOBIA [None]
  - SUICIDAL IDEATION [None]
  - THINKING ABNORMAL [None]
  - VOMITING [None]
